FAERS Safety Report 5124180-8 (Version None)
Quarter: 2006Q4

REPORT INFORMATION
  Report Type: 
  Country: None (occurrence: None)
  Receive Date: 20061010
  Receipt Date: 20060707
  Transmission Date: 20070319
  Serious: No
  Sender: FDA-Public Use
  Company Number: US-BRISTOL-MYERS SQUIBB COMPANY-13435581

PATIENT
  Age: 63 Year
  Sex: Female
  Weight: 57 kg

DRUGS (2)
  1. AVAPRO [Suspect]
     Indication: HYPERTENSION
     Route: 048
  2. PROGEST [Concomitant]
     Dosage: DURATION OF THERAPY:  6-7 YEARS

REACTIONS (3)
  - ANXIETY [None]
  - DIZZINESS POSTURAL [None]
  - PALPITATIONS [None]
